FAERS Safety Report 16391277 (Version 3)
Quarter: 2019Q3

REPORT INFORMATION
  Report Type: Spontaneous
  Country: EG (occurrence: EG)
  Receive Date: 20190604
  Receipt Date: 20190903
  Transmission Date: 20191004
  Serious: Yes (Life-Threatening, Hospitalization, Other)
  Sender: FDA-Public Use
  Company Number: PHHY2019EG127416

PATIENT
  Age: 3 Year
  Sex: Male
  Weight: 15 kg

DRUGS (2)
  1. CEFTRIAXONE SANDOZ [Suspect]
     Active Substance: CEFTRIAXONE
     Indication: TONSILLITIS
  2. CEFTRIAXONE SANDOZ [Suspect]
     Active Substance: CEFTRIAXONE
     Indication: PYREXIA
     Dosage: 500 MG, QD
     Route: 030
     Dates: start: 20190529, end: 20190601

REACTIONS (13)
  - Lymphocyte percentage decreased [Recovering/Resolving]
  - Haemoglobin decreased [Recovering/Resolving]
  - Decreased immune responsiveness [Recovering/Resolving]
  - Mean cell haemoglobin concentration decreased [Recovering/Resolving]
  - Urticaria [Recovering/Resolving]
  - Hypochromic anaemia [Recovering/Resolving]
  - Mean cell volume decreased [Recovering/Resolving]
  - Rash [Recovering/Resolving]
  - Neutropenia [Recovering/Resolving]
  - Haematocrit decreased [Recovering/Resolving]
  - Mean cell haemoglobin decreased [Recovering/Resolving]
  - Skin disorder [Recovering/Resolving]
  - Red cell distribution width increased [Recovering/Resolving]

NARRATIVE: CASE EVENT DATE: 20190530
